FAERS Safety Report 6473759-X (Version None)
Quarter: 2009Q4

REPORT INFORMATION
  Report Type: 
  Country: None (occurrence: None)
  Receive Date: 20091204
  Receipt Date: 20091127
  Transmission Date: 20100525
  Serious: Yes (Hospitalization, Other)
  Sender: FDA-Public Use
  Company Number: JP-PFIZER INC-2009303525

PATIENT
  Age: 77 Year
  Sex: Male
  Weight: 49.4 kg

DRUGS (2)
  1. SUNITINIB MALATE [Suspect]
     Indication: RENAL CELL CARCINOMA
     Dosage: 50 MG, 1X/DAY
     Route: 048
     Dates: start: 20090511, end: 20090708
  2. LEVOTHYROXINE SODIUM [Concomitant]
     Dosage: UNK
     Route: 048
     Dates: start: 20090515

REACTIONS (4)
  - HYPOTHYROIDISM [None]
  - LIPASE INCREASED [None]
  - PLATELET COUNT DECREASED [None]
  - PYREXIA [None]
